FAERS Safety Report 6568051-9 (Version None)
Quarter: 2010Q1

REPORT INFORMATION
  Report Type: 
  Country: None (occurrence: None)
  Receive Date: 20100203
  Receipt Date: 20100120
  Transmission Date: 20100710
  Serious: Yes (Other)
  Sender: FDA-Public Use
  Company Number: US-ELI_LILLY_AND_COMPANY-US201001004571

PATIENT
  Sex: Female

DRUGS (9)
  1. CYMBALTA [Suspect]
     Indication: FIBROMYALGIA
     Dosage: 30 MG, DAILY (1/D)
     Dates: start: 20091201, end: 20091201
  2. CYMBALTA [Suspect]
     Dosage: 60 MG, DAILY (1/D)
     Dates: start: 20091201
  3. LYRICA [Concomitant]
     Indication: FIBROMYALGIA
     Dates: end: 20091201
  4. ANTIDEPRESSANTS [Concomitant]
     Indication: HOT FLUSH
  5. CARDIZEM [Concomitant]
  6. HYDROCHLOROTHIAZIDE [Concomitant]
  7. LOPRESSOR [Concomitant]
  8. VICODIN [Concomitant]
  9. ROBAXIN [Concomitant]

REACTIONS (13)
  - AURICULAR SWELLING [None]
  - DRUG INEFFECTIVE [None]
  - DYSGRAPHIA [None]
  - EYE SWELLING [None]
  - HOT FLUSH [None]
  - HYPERAESTHESIA [None]
  - INFLUENZA LIKE ILLNESS [None]
  - MUSCULOSKELETAL DISCOMFORT [None]
  - PAIN [None]
  - RESTLESSNESS [None]
  - TREMOR [None]
  - URTICARIA [None]
  - VASCULITIS [None]
